FAERS Safety Report 7271765-9 (Version None)
Quarter: 2011Q1

REPORT INFORMATION
  Report Type: 
  Country: None (occurrence: None)
  Receive Date: 20110203
  Receipt Date: 20110125
  Transmission Date: 20110831
  Serious: Yes (Other)
  Sender: FDA-Public Use
  Company Number: US-CELGENEUS-163-21880-11012676

PATIENT
  Sex: Female
  Weight: 59.02 kg

DRUGS (9)
  1. REVLIMID [Suspect]
     Route: 048
  2. FUROSEMIDE [Concomitant]
     Dosage: 40
     Route: 065
  3. KLOR-CON [Concomitant]
     Route: 065
  4. ASPIRIN [Concomitant]
     Dosage: 81
     Route: 065
  5. VITAMIN D [Concomitant]
     Route: 065
  6. CARVEDILOL [Concomitant]
     Route: 065
  7. REVLIMID [Suspect]
     Indication: MULTIPLE MYELOMA
     Route: 048
     Dates: start: 20100801
  8. PANTOPRAZOLE [Concomitant]
     Route: 065
  9. MAGNESIUM OXIDE [Concomitant]
     Dosage: 400
     Route: 065

REACTIONS (2)
  - UPPER LIMB FRACTURE [None]
  - FALL [None]
